FAERS Safety Report 10487217 (Version 2)
Quarter: 2015Q1

REPORT INFORMATION
  Report Type: Report from Study
  Country: US (occurrence: US)
  Receive Date: 20141001
  Receipt Date: 20150127
  Transmission Date: 20150720
  Serious: Yes (Other)
  Sender: FDA-Public Use
  Company Number: US-PFIZER INC-2014268091

PATIENT
  Age: 62 Year
  Sex: Female
  Weight: 60 kg

DRUGS (15)
  1. BRILINTA [Interacting]
     Active Substance: TICAGRELOR
     Indication: ACUTE CORONARY SYNDROME
  2. LEVOTHYROXINE SODIUM. [Interacting]
     Active Substance: LEVOTHYROXINE SODIUM
     Indication: HYPOTHYROIDISM
     Dosage: UNK
     Route: 065
  3. BRILINTA [Interacting]
     Active Substance: TICAGRELOR
     Indication: STENT PLACEMENT
     Dosage: 90 MG, 2X/DAY
     Route: 048
     Dates: start: 20130826
  4. BIOTIN [Concomitant]
     Active Substance: BIOTIN
     Indication: NAIL DISORDER
     Dosage: 1000 UG, 2X/DAY
     Route: 048
     Dates: start: 2013
  5. BYSTOLIC [Concomitant]
     Active Substance: NEBIVOLOL HYDROCHLORIDE
     Indication: BLOOD PRESSURE
     Dosage: 5 MG, DAILY
     Route: 065
     Dates: start: 201308, end: 201309
  6. MULTIVITAMINS [Concomitant]
     Active Substance: VITAMINS
     Indication: ROUTINE HEALTH MAINTENANCE
     Dosage: 1 DF, 2X/DAY
     Route: 048
     Dates: start: 2012
  7. VITAMIN B-C-E W/FOLIC ACID/BIOTIN [Concomitant]
     Dosage: DAILY
     Route: 065
     Dates: start: 2012
  8. ATENOLOL. [Suspect]
     Active Substance: ATENOLOL
     Indication: BLOOD PRESSURE ABNORMAL
     Dosage: 12.5 MG, 2X/DAY
     Route: 048
     Dates: start: 20130826
  9. VITAMIN D3 [Concomitant]
     Active Substance: CHOLECALCIFEROL
     Indication: VITAMIN D DEFICIENCY
     Dosage: UNK
     Route: 048
  10. VITAMIN D3 [Concomitant]
     Active Substance: CHOLECALCIFEROL
     Dosage: 1000 IU, DAILY
     Dates: start: 2012
  11. TYLENOL EXTRA STRENGTH [Concomitant]
     Active Substance: ACETAMINOPHEN
     Indication: PAIN
     Dosage: 1 DF, AS NEEDED
     Route: 048
     Dates: start: 2013
  12. CLONIDINE. [Concomitant]
     Active Substance: CLONIDINE
     Dosage: UNK
     Route: 065
     Dates: start: 201306, end: 201308
  13. LISINOPRIL. [Suspect]
     Active Substance: LISINOPRIL
     Route: 048
  14. ASPIRIN. [Concomitant]
     Active Substance: ASPIRIN
     Indication: BLOOD DISORDER
     Dosage: 81 MG, HS
     Route: 048
     Dates: start: 2007
  15. VERAPAMIL [Concomitant]
     Active Substance: VERAPAMIL HYDROCHLORIDE
     Route: 065

REACTIONS (19)
  - Angioedema [Unknown]
  - Drug interaction [Unknown]
  - Vitamin D decreased [Unknown]
  - Drug hypersensitivity [Unknown]
  - Epistaxis [Unknown]
  - Skin discolouration [Unknown]
  - Dyspnoea [Unknown]
  - Chest pain [Unknown]
  - Eye pain [Unknown]
  - Headache [Unknown]
  - Abdominal pain [Unknown]
  - Feeling abnormal [Unknown]
  - Disorientation [Unknown]
  - Disturbance in attention [Unknown]
  - Vision blurred [Unknown]
  - Palpitations [Unknown]
  - Muscle spasms [Unknown]
  - Pain in extremity [Unknown]
  - Contusion [Unknown]

NARRATIVE: CASE EVENT DATE: 201308
